FAERS Safety Report 6093191-0 (Version None)
Quarter: 2009Q1

REPORT INFORMATION
  Report Type: 
  Country: None (occurrence: None)
  Receive Date: 20090223
  Receipt Date: 20090216
  Transmission Date: 20090719
  Serious: Yes (Death, Life-Threatening)
  Sender: FDA-Public Use
  Company Number: 2009JP000856

PATIENT
  Age: 5 Year
  Sex: Male

DRUGS (2)
  1. PROGRAF [Suspect]
     Indication: ALLOGENIC BONE MARROW TRANSPLANTATION THERAPY
  2. MYCOPHENOLATE MOFETIL [Concomitant]

REACTIONS (2)
  - INTERSTITIAL LUNG DISEASE [None]
  - THROMBOTIC MICROANGIOPATHY [None]
